FAERS Safety Report 12376725 (Version 2)
Quarter: 2016Q2

REPORT INFORMATION
  Report Type: Report from Study
  Country: US (occurrence: US)
  Receive Date: 20160517
  Receipt Date: 20160517
  Transmission Date: 20160815
  Serious: No
  Sender: FDA-Public Use
  Company Number: US-MALLINCKRODT-T201502869

PATIENT
  Age: 67 Year
  Sex: Female

DRUGS (9)
  1. PREDNISONE. [Suspect]
     Active Substance: PREDNISONE
     Indication: PRODUCT USED FOR UNKNOWN INDICATION
     Dosage: 30 MG, QD
     Route: 048
  2. HYDROCHLOROTHIAZIDE. [Concomitant]
     Active Substance: HYDROCHLOROTHIAZIDE
     Indication: HYPERTENSION
     Dosage: 200 MG, BID
     Route: 048
  3. HYDROCODONE BITARTRATE AND ACETAMINOPHEN [Concomitant]
     Active Substance: ACETAMINOPHEN\HYDROCODONE BITARTRATE
     Indication: PAIN
     Dosage: 5/235 MG PRN
     Route: 048
  4. LISINOPRIL. [Concomitant]
     Active Substance: LISINOPRIL
     Indication: HYPERTENSION
     Dosage: 12.5 MG, QD
     Route: 048
  5. MELOXICAM. [Concomitant]
     Active Substance: MELOXICAM
     Indication: INFLAMMATION
     Dosage: 15 MG, QD
     Route: 048
  6. REPOSITORY CORTICOTROPIN INJECTION [Suspect]
     Active Substance: CORTICOTROPIN
     Indication: POLYMYOSITIS
     Dosage: 80 UNITS, ONCE PER WEEK
     Route: 058
     Dates: start: 20150211, end: 20150506
  7. B6 [Concomitant]
     Active Substance: PYRIDOXINE HYDROCHLORIDE
     Dosage: QD
     Route: 048
  8. VITAMIN D [Concomitant]
     Active Substance: CHOLECALCIFEROL
     Dosage: QD
     Route: 048
  9. VITAMIN B12 [Concomitant]
     Active Substance: CYANOCOBALAMIN
     Dosage: QD
     Route: 048

REACTIONS (2)
  - Weight increased [Not Recovered/Not Resolved]
  - Red blood cell count increased [Recovering/Resolving]

NARRATIVE: CASE EVENT DATE: 201502
